FAERS Safety Report 22351068 (Version 2)
Quarter: 2023Q2

REPORT INFORMATION
  Report Type: Spontaneous
  Country: CA (occurrence: CA)
  Receive Date: 20230522
  Receipt Date: 20230526
  Transmission Date: 20230721
  Serious: Yes (Hospitalization)
  Sender: FDA-Public Use
  Company Number: CA-SAMSUNG BIOEPIS-SB-2023-13574

PATIENT
  Age: 14 Year
  Sex: Male
  Weight: 45.6 kg

DRUGS (11)
  1. INFLIXIMAB [Suspect]
     Active Substance: INFLIXIMAB
     Indication: Colitis ulcerative
     Dosage: WEEK 0
     Route: 065
  2. INFLIXIMAB [Suspect]
     Active Substance: INFLIXIMAB
     Dosage: WEEKS 1, 2, 3, 6, AND 7;
     Route: 065
  3. PREDNISONE [Concomitant]
     Active Substance: PREDNISONE
     Indication: Colitis ulcerative
     Route: 065
  4. METHOTREXATE [Concomitant]
     Active Substance: METHOTREXATE
     Indication: Colitis ulcerative
     Dosage: AT WEEKS 2 AND 3;
     Route: 058
  5. VEDOLIZUMAB [Concomitant]
     Active Substance: VEDOLIZUMAB
     Indication: Colitis ulcerative
     Dosage: UNKNOWN, WEEKS 3, 5, AND 9;
     Route: 065
  6. MESALAMINE [Concomitant]
     Active Substance: MESALAMINE
     Indication: Colitis ulcerative
     Dosage: WEEK 1;
     Route: 048
  7. MESALAMINE [Concomitant]
     Active Substance: MESALAMINE
     Dosage: INTRARECTAL AT WEEK 3-5.
     Route: 065
  8. VANCOMYCIN [Concomitant]
     Active Substance: VANCOMYCIN
     Indication: Colitis ulcerative
     Dosage: WEEKS 3 AND 4;
     Route: 048
  9. IRON [Concomitant]
     Active Substance: IRON
     Indication: Product used for unknown indication
     Dosage: SUPPLEMENTATION (WEEKS 0, 1, 2, 3, AND 9)
     Route: 042
  10. ALBUMIN HUMAN [Concomitant]
     Active Substance: ALBUMIN HUMAN
     Indication: Product used for unknown indication
     Dosage: TPN (WEEKS 2-9)
     Route: 065
  11. ZINC [Concomitant]
     Active Substance: ZINC
     Indication: Product used for unknown indication
     Route: 065

REACTIONS (4)
  - Malnutrition [Unknown]
  - Drug ineffective [Unknown]
  - Exposure to SARS-CoV-2 [Unknown]
  - Off label use [Unknown]
